FAERS Safety Report 12780336 (Version 2)
Quarter: 2016Q4

REPORT INFORMATION
  Report Type: Report from Study
  Country: JP (occurrence: JP)
  Receive Date: 20160926
  Receipt Date: 20161018
  Transmission Date: 20170207
  Serious: Yes (Other)
  Sender: FDA-Public Use
  Company Number: JP-AMGEN-JPNNI2016131499

PATIENT
  Age: 65 Year
  Sex: Female
  Weight: 46 kg

DRUGS (25)
  1. DENOSUMAB [Suspect]
     Active Substance: DENOSUMAB
     Dosage: 120 MG, UNK
     Route: 058
     Dates: start: 20140403, end: 20150305
  2. DENOSUMAB [Suspect]
     Active Substance: DENOSUMAB
     Dosage: 120 MG, UNK
     Route: 058
     Dates: start: 20140501, end: 20150305
  3. DENOSUMAB [Suspect]
     Active Substance: DENOSUMAB
     Dosage: 120 MG, UNK
     Route: 058
     Dates: start: 20140306, end: 20150305
  4. FERROUS SULFATE. [Concomitant]
     Active Substance: FERROUS SULFATE
     Dosage: 210 MG, QD
     Route: 048
     Dates: start: 20130822
  5. DENOSUMAB [Suspect]
     Active Substance: DENOSUMAB
     Dosage: 120 MG, UNK
     Route: 058
     Dates: start: 20150205, end: 20150305
  6. FASLODEX [Concomitant]
     Active Substance: FULVESTRANT
     Dosage: UNK
     Route: 065
     Dates: start: 20140715, end: 20141211
  7. LANSOPRAZOLE. [Concomitant]
     Active Substance: LANSOPRAZOLE
     Dosage: 15 MG, QD
     Route: 048
  8. DENOSUMAB [Suspect]
     Active Substance: DENOSUMAB
     Dosage: 120 MG, UNK
     Route: 058
     Dates: start: 20141106, end: 20150305
  9. DENOSUMAB [Suspect]
     Active Substance: DENOSUMAB
     Dosage: 120 MG, UNK
     Route: 058
     Dates: start: 20150305, end: 20150305
  10. PAROXETINE. [Concomitant]
     Active Substance: PAROXETINE
     Dosage: 20 MG, QD
     Route: 048
     Dates: start: 20140612
  11. DENOSUMAB [Suspect]
     Active Substance: DENOSUMAB
     Dosage: 120 MG, UNK
     Route: 058
     Dates: start: 20131205, end: 20150305
  12. DENOSUMAB [Suspect]
     Active Substance: DENOSUMAB
     Dosage: 120 MG, UNK
     Route: 058
     Dates: start: 20140109, end: 20150305
  13. DENOSUMAB [Suspect]
     Active Substance: DENOSUMAB
     Dosage: 120 MG, UNK
     Route: 058
     Dates: start: 20140206, end: 20150305
  14. DENOSUMAB [Suspect]
     Active Substance: DENOSUMAB
     Dosage: 120 MG, UNK
     Route: 058
     Dates: start: 20140729, end: 20150305
  15. DENOTAS [Concomitant]
     Active Substance: CALCIUM CARBONATE\CHOLECALCIFEROL\MAGNESIUM CARBONATE
     Dosage: 2 DF, QD
     Route: 048
     Dates: start: 20131107, end: 20150326
  16. CEPHARANTHINE [Concomitant]
     Active Substance: CEPHARANTHINE
     Dosage: 6 MG, QD
     Route: 048
     Dates: start: 20130822
  17. DENOSUMAB [Suspect]
     Active Substance: DENOSUMAB
     Dosage: 120 MG, UNK
     Route: 058
     Dates: start: 20140701, end: 20150305
  18. DENOSUMAB [Suspect]
     Active Substance: DENOSUMAB
     Dosage: 120 MG, UNK
     Route: 058
     Dates: start: 20141007, end: 20150305
  19. ETIZOLAM [Concomitant]
     Active Substance: ETIZOLAM
     Dosage: 0.5 MG, QD
     Route: 048
     Dates: start: 20140612
  20. DENOSUMAB [Suspect]
     Active Substance: DENOSUMAB
     Indication: METASTASES TO BONE
     Dosage: 120 MG, UNK
     Route: 058
     Dates: start: 20131107, end: 20150305
  21. DENOSUMAB [Suspect]
     Active Substance: DENOSUMAB
     Dosage: 120 MG, UNK
     Route: 058
     Dates: start: 20150108, end: 20150305
  22. DENOSUMAB [Suspect]
     Active Substance: DENOSUMAB
     Dosage: 120 MG, UNK
     Route: 058
     Dates: start: 20140603, end: 20150305
  23. DENOSUMAB [Suspect]
     Active Substance: DENOSUMAB
     Dosage: 120 MG, UNK
     Route: 058
     Dates: start: 20140909, end: 20150305
  24. DENOSUMAB [Suspect]
     Active Substance: DENOSUMAB
     Dosage: 120 MG, UNK
     Route: 058
     Dates: start: 20141211, end: 20150305
  25. HALAVEN [Concomitant]
     Active Substance: ERIBULIN MESYLATE
     Dosage: UNK
     Route: 065
     Dates: start: 20150108, end: 20150305

REACTIONS (1)
  - Osteonecrosis of jaw [Not Recovered/Not Resolved]

NARRATIVE: CASE EVENT DATE: 20150312
